FAERS Safety Report 7737715-3 (Version None)
Quarter: 2011Q3

REPORT INFORMATION
  Report Type: 
  Country: None (occurrence: None)
  Receive Date: 20110902
  Receipt Date: 20110825
  Transmission Date: 20111222
  Serious: Yes (Death, Other)
  Sender: FDA-Public Use
  Company Number: 2011MA012720

PATIENT
  Age: 54 Year
  Sex: Female

DRUGS (4)
  1. ACETAMINOPHEN [Suspect]
  2. TRAMADOL HYDROCHLORIDE [Suspect]
  3. MORPHINE [Concomitant]
  4. CODEINE SULFATE [Concomitant]

REACTIONS (7)
  - RESPIRATORY ARREST [None]
  - DEPRESSION [None]
  - CONDITION AGGRAVATED [None]
  - TOXICITY TO VARIOUS AGENTS [None]
  - COMPLETED SUICIDE [None]
  - MULTIPLE DRUG OVERDOSE INTENTIONAL [None]
  - BACK DISORDER [None]
